FAERS Safety Report 8880328 (Version 2)
Quarter: 2012Q4

REPORT INFORMATION
  Report Type: 
  Country: BR (occurrence: BR)
  Receive Date: 20121101
  Receipt Date: 20121210
  Transmission Date: 20130627
  Serious: Yes (Other)
  Sender: FDA-Public Use
  Company Number: PHHY2012BR097587

PATIENT
  Age: 57 None
  Sex: Female

DRUGS (5)
  1. SANDOSTATIN LAR [Suspect]
     Indication: ACROMEGALY
     Dosage: 30 mg, EVERY 28 DAYS
     Route: 030
     Dates: start: 201108
  2. SANDOSTATIN LAR [Suspect]
     Dates: start: 201210
  3. DRAMIN [Concomitant]
  4. GLIFAGE [Concomitant]
     Indication: HYPERGLYCAEMIA
     Dosage: 500 mg, UNK
     Route: 048
  5. DEPURA [Concomitant]
     Indication: VITAMIN SUPPLEMENTATION
     Dosage: 10 drp, UNK
     Route: 048

REACTIONS (5)
  - Depressed mood [Recovering/Resolving]
  - Application site haemorrhage [Unknown]
  - Pain in extremity [Recovering/Resolving]
  - Groin pain [Recovering/Resolving]
  - Nausea [Recovering/Resolving]
